FAERS Safety Report 6639480-X (Version None)
Quarter: 2010Q1

REPORT INFORMATION
  Report Type: 
  Country: None (occurrence: None)
  Receive Date: 20100318
  Receipt Date: 20100317
  Transmission Date: 20100710
  Serious: Yes (Other)
  Sender: FDA-Public Use
  Company Number: US-RB-004856-10

PATIENT
  Age: 46 Year
  Sex: Female

DRUGS (6)
  1. MUCINEX DM [Suspect]
     Route: 048
     Dates: start: 20100316
  2. BUSPAR [Concomitant]
     Indication: DEPRESSION
  3. BUSPAR [Concomitant]
     Indication: ANXIETY
  4. LISINOPRIL [Concomitant]
  5. INSULIN [Concomitant]
  6. TRILEPTIL [Concomitant]
     Dosage: 2 A DAY

REACTIONS (8)
  - ACCIDENTAL OVERDOSE [None]
  - BLOOD PRESSURE INCREASED [None]
  - DIZZINESS [None]
  - ERYTHEMA [None]
  - HYPOAESTHESIA [None]
  - HYPOAESTHESIA ORAL [None]
  - PALPITATIONS [None]
  - PARAESTHESIA [None]
